FAERS Safety Report 21197940 (Version 4)
Quarter: 2022Q4

REPORT INFORMATION
  Report Type: Report from Study
  Country: US (occurrence: US)
  Receive Date: 20220810
  Receipt Date: 20221213
  Transmission Date: 20230112
  Serious: Yes (Other)
  Sender: FDA-Public Use
  Company Number: US-ABBVIE-22K-163-4494047-00

PATIENT
  Age: 64 Year
  Sex: Female

DRUGS (5)
  1. RINVOQ [Suspect]
     Active Substance: UPADACITINIB
     Indication: Rheumatoid arthritis
     Route: 048
     Dates: start: 20220917
  2. PFIZER-BIONTECH COVID-19 VACCINE [Concomitant]
     Active Substance: TOZINAMERAN
     Indication: COVID-19 immunisation
     Dosage: TIME INTERVAL: 1 TOTAL: 1ST DOSE, 1 IN ONCE
     Route: 030
     Dates: start: 20210309, end: 20210309
  3. PFIZER-BIONTECH COVID-19 VACCINE [Concomitant]
     Active Substance: TOZINAMERAN
     Indication: COVID-19 immunisation
     Dosage: TIME INTERVAL: 1 TOTAL: 2ND DOSE, 1 IN ONCE
     Route: 030
     Dates: start: 20210330, end: 20210330
  4. PFIZER-BIONTECH COVID-19 VACCINE [Concomitant]
     Active Substance: TOZINAMERAN
     Indication: COVID-19 immunisation
     Dosage: TIME INTERVAL: 1 TOTAL: 3RD DOSE, 1 IN ONCE,
     Route: 030
     Dates: start: 20211231, end: 20211231
  5. SAXENDA [Concomitant]
     Active Substance: LIRAGLUTIDE
     Indication: Product used for unknown indication
     Dosage: 6MG/ML (5X3ML PEN)
     Route: 058

REACTIONS (10)
  - Ankle fracture [Recovered/Resolved]
  - Rheumatoid arthritis [Not Recovered/Not Resolved]
  - COVID-19 [Recovered/Resolved]
  - Loss of personal independence in daily activities [Not Recovered/Not Resolved]
  - Pain [Recovered/Resolved]
  - Bone disorder [Unknown]
  - Fall [Unknown]
  - Multiple fractures [Unknown]
  - Unevaluable event [Unknown]
  - Pain [Not Recovered/Not Resolved]

NARRATIVE: CASE EVENT DATE: 20221101
